FAERS Safety Report 7753759-X (Version None)
Quarter: 2011Q3

REPORT INFORMATION
  Report Type: 
  Country: None (occurrence: None)
  Receive Date: 20110915
  Receipt Date: 20110907
  Transmission Date: 20111222
  Serious: Yes (Hospitalization, Other)
  Sender: FDA-Public Use
  Company Number: JP-CEPHALON-2011004834

PATIENT
  Sex: Male
  Weight: 61 kg

DRUGS (8)
  1. SULFAMETHOXAZOLE AND TRIMETHOPRIM [Concomitant]
     Dates: start: 20110209, end: 20110602
  2. FLUCONAZOLE [Concomitant]
     Dates: start: 20110201, end: 20110614
  3. ACYCLOVIR [Concomitant]
     Dates: start: 20110201, end: 20110529
  4. BENPROPERINE PHOSPHATE [Concomitant]
     Dates: start: 20110301, end: 20110307
  5. TREANDA [Suspect]
     Route: 042
     Dates: start: 20110425
  6. APREPITANT [Concomitant]
     Dates: start: 20110425, end: 20110428
  7. TREANDA [Suspect]
     Indication: MANTLE CELL LYMPHOMA
     Route: 042
     Dates: start: 20110201, end: 20110301
  8. LEVOFLOXACIN [Concomitant]
     Dates: start: 20110301, end: 20110307

REACTIONS (11)
  - WHITE BLOOD CELL COUNT DECREASED [None]
  - HAEMOGLOBIN DECREASED [None]
  - NAUSEA [None]
  - THROMBOCYTOPENIA [None]
  - LYMPHOCYTE COUNT DECREASED [None]
  - RED BLOOD CELL COUNT DECREASED [None]
  - MALAISE [None]
  - HAEMATOCRIT DECREASED [None]
  - DECREASED APPETITE [None]
  - PERFORMANCE STATUS DECREASED [None]
  - ACTIVITIES OF DAILY LIVING IMPAIRED [None]
